FAERS Safety Report 10553859 (Version 2)
Quarter: 2015Q1

REPORT INFORMATION
  Report Type: Spontaneous
  Country: US (occurrence: None)
  Receive Date: 20141028
  Receipt Date: 20150303
  Transmission Date: 20150720
  Serious: Yes (Death, Hospitalization, Other)
  Sender: FDA-Public Use
  Company Number: 201410103

PATIENT
  Age: 53 Year
  Sex: Male
  Weight: 108.86 kg

DRUGS (3)
  1. TESTIM [Suspect]
     Active Substance: TESTOSTERONE
     Indication: BLOOD TESTOSTERONE DECREASED
     Dosage: TRANSDERMAL
     Route: 062
     Dates: start: 200509, end: 201210
  2. TESTIM [Suspect]
     Active Substance: TESTOSTERONE
     Indication: FATIGUE
     Dosage: TRANSDERMAL
     Route: 062
     Dates: start: 200509, end: 201210
  3. TESTIM [Suspect]
     Active Substance: TESTOSTERONE
     Indication: ASTHENIA
     Dosage: TRANSDERMAL
     Route: 062
     Dates: start: 200509, end: 201210

REACTIONS (6)
  - Cardio-respiratory arrest [None]
  - Emotional disorder [None]
  - Multiple injuries [None]
  - Economic problem [None]
  - Pulmonary embolism [None]
  - Myocardial infarction [None]

NARRATIVE: CASE EVENT DATE: 20121014
